FAERS Safety Report 5212553-4 (Version None)
Quarter: 2007Q1

REPORT INFORMATION
  Report Type: 
  Country: None (occurrence: None)
  Receive Date: 20070118
  Receipt Date: 20070109
  Transmission Date: 20070707
  Serious: Yes (Hospitalization)
  Sender: FDA-Public Use
  Company Number: US-ABBOTT-06P-163-0348427-00

PATIENT
  Sex: Male

DRUGS (2)
  1. GENGRAF ORAL SOLUTION [Suspect]
     Indication: HEART TRANSPLANT
     Dates: start: 19920101, end: 20070101
  2. GENGRAF ORAL SOLUTION [Suspect]
     Route: 048
     Dates: start: 20070101

REACTIONS (4)
  - CORONARY ARTERY DISEASE [None]
  - INCORRECT DOSE ADMINISTERED [None]
  - INFECTION [None]
  - NIGHT SWEATS [None]
